FAERS Safety Report 7497830-9 (Version None)
Quarter: 2011Q2

REPORT INFORMATION
  Report Type: 
  Country: None (occurrence: None)
  Receive Date: 20110524
  Receipt Date: 20090115
  Transmission Date: 20111010
  Serious: Yes (Other)
  Sender: FDA-Public Use
  Company Number: US-BAYER-200911119NA

PATIENT
  Age: 50 Year
  Sex: Male
  Weight: 76 kg

DRUGS (12)
  1. HEPARIN [Concomitant]
     Dosage: 23,000UNITS
     Route: 042
     Dates: start: 20000616, end: 20000616
  2. ZOCOR [Concomitant]
     Dosage: UNK
     Route: 048
     Dates: start: 20000601
  3. TRASYLOL [Suspect]
     Indication: CORONARY ARTERY BYPASS
     Dosage: 40 ML / HOUR
     Route: 042
     Dates: start: 20000616, end: 20000616
  4. NITROGLYCERIN [Concomitant]
     Dosage: UNK
     Dates: start: 20000616, end: 20000616
  5. PERCOCET [Concomitant]
     Dosage: UNK
     Route: 048
     Dates: start: 20000601
  6. NITROGLYCERIN [Concomitant]
     Dosage: UNK
     Route: 060
     Dates: start: 20000601
  7. ACETYLSALICYLIC ACID SRT [Concomitant]
     Dosage: ONE DAILY
     Route: 048
     Dates: start: 20000601
  8. SENOKOT [Concomitant]
     Dosage: UNK
     Route: 048
     Dates: start: 20000601
  9. IBUPROFEN [Concomitant]
     Route: 048
  10. ATENOLOL [Concomitant]
     Dosage: 50MG
     Route: 048
     Dates: start: 19980101
  11. CEFAZOLIN [Concomitant]
     Dosage: 1 GM
     Route: 042
     Dates: start: 20000616, end: 20000616
  12. CIPRO [Concomitant]
     Route: 048

REACTIONS (14)
  - MULTI-ORGAN FAILURE [None]
  - UNEVALUABLE EVENT [None]
  - ANHEDONIA [None]
  - EMOTIONAL DISTRESS [None]
  - INJURY [None]
  - MENTAL DISORDER [None]
  - RENAL IMPAIRMENT [None]
  - ANXIETY [None]
  - FEAR [None]
  - RENAL FAILURE [None]
  - RENAL INJURY [None]
  - STRESS [None]
  - PAIN [None]
  - DEPRESSION [None]
